FAERS Safety Report 18727436 (Version 2)
Quarter: 2021Q1

REPORT INFORMATION
  Report Type: Report from Study
  Country: None (occurrence: CH)
  Receive Date: 20210112
  Receipt Date: 20210330
  Transmission Date: 20210419
  Serious: Yes (Hospitalization)
  Sender: FDA-Public Use
  Company Number: CH-ABBVIE-21K-151-3725555-00

PATIENT
  Age: 73 Year
  Sex: Male

DRUGS (6)
  1. DUODOPA [Suspect]
     Active Substance: CARBIDOPA\LEVODOPA
     Indication: PARKINSON^S DISEASE
     Dosage: MD: 5 ML, CRD: 3.3 ML/H, CRN: 0 ML/H, ED: 1 ML
     Route: 050
     Dates: start: 20201005
  2. SEROQUEL [Concomitant]
     Active Substance: QUETIAPINE FUMARATE
     Indication: PRODUCT USED FOR UNKNOWN INDICATION
  3. DUODOPA [Suspect]
     Active Substance: CARBIDOPA\LEVODOPA
  4. EXELON [Concomitant]
     Active Substance: RIVASTIGMINE TARTRATE
     Indication: PRODUCT USED FOR UNKNOWN INDICATION
     Route: 061
  5. CLOZAPIN [Concomitant]
     Active Substance: CLOZAPINE
     Indication: PRODUCT USED FOR UNKNOWN INDICATION
  6. CITALOPRAM [Concomitant]
     Active Substance: CITALOPRAM HYDROBROMIDE
     Indication: PRODUCT USED FOR UNKNOWN INDICATION

REACTIONS (3)
  - General physical health deterioration [Unknown]
  - Urosepsis [Unknown]
  - Device occlusion [Recovered/Resolved]

NARRATIVE: CASE EVENT DATE: 20210107
